FAERS Safety Report 6260423-5 (Version None)
Quarter: 2009Q3

REPORT INFORMATION
  Report Type: 
  Country: None (occurrence: None)
  Receive Date: 20090708
  Receipt Date: 20090630
  Transmission Date: 20100115
  Serious: Yes (Other)
  Sender: FDA-Public Use
  Company Number: CN-BRISTOL-MYERS SQUIBB COMPANY-14681423

PATIENT
  Age: 46 Year
  Sex: Male
  Weight: 73 kg

DRUGS (1)
  1. ERBITUX [Suspect]
     Indication: GASTRIC CANCER
     Dosage: STOP DATE: 19-JUN-2009
     Route: 042
     Dates: start: 20090618, end: 20090618

REACTIONS (1)
  - GASTRIC PERFORATION [None]
